FAERS Safety Report 20760439 (Version 5)
Quarter: 2022Q2

REPORT INFORMATION
  Report Type: Spontaneous
  Country: US (occurrence: US)
  Receive Date: 20220428
  Receipt Date: 20220602
  Transmission Date: 20220721
  Serious: No
  Sender: FDA-Public Use
  Company Number: US-AMGEN-USASP2022068815

PATIENT
  Age: 43 Year
  Sex: Female
  Weight: 100.24 kg

DRUGS (2)
  1. NEULASTA [Suspect]
     Active Substance: PEGFILGRASTIM
     Indication: Neutropenia
     Dosage: UNK
     Route: 065
  2. NEULASTA [Suspect]
     Active Substance: PEGFILGRASTIM
     Dosage: UNK
     Route: 065

REACTIONS (5)
  - Device issue [Unknown]
  - Device issue [Unknown]
  - Accidental exposure to product [Unknown]
  - Application site haemorrhage [Unknown]
  - Application site discomfort [Unknown]

NARRATIVE: CASE EVENT DATE: 20220310
